FAERS Safety Report 11160571 (Version 1)
Quarter: 2015Q2

REPORT INFORMATION
  Report Type: Spontaneous
  Country: US (occurrence: US)
  Receive Date: 20150604
  Receipt Date: 20150604
  Transmission Date: 20150821
  Serious: No
  Sender: FDA-Public Use
  Company Number: US-SA-2014SA056709

PATIENT
  Age: 83 Year
  Sex: Female

DRUGS (3)
  1. LANTUS SOLOSTAR [Suspect]
     Active Substance: INSULIN GLARGINE
     Indication: TYPE 2 DIABETES MELLITUS
     Dosage: DOSE:10 UNIT(S)
     Route: 058
     Dates: start: 2013
  2. INSULIN [Concomitant]
     Active Substance: INSULIN NOS
  3. SOLOSTAR [Suspect]
     Active Substance: DEVICE
     Dates: start: 2013

REACTIONS (1)
  - Blood glucose increased [Unknown]
